FAERS Safety Report 10334970 (Version 1)
Quarter: 2014Q3

REPORT INFORMATION
  Report Type: Spontaneous
  Country: US (occurrence: US)
  Receive Date: 20140723
  Receipt Date: 20140723
  Transmission Date: 20150326
  Serious: Yes (Other)
  Sender: FDA-Public Use
  Company Number: PHHY2014US090092

PATIENT
  Age: 26 Year
  Sex: Female

DRUGS (1)
  1. TRIAMCINOLONE [Suspect]
     Active Substance: TRIAMCINOLONE
     Indication: DERMATITIS
     Dosage: 0.1 %, UNK
     Route: 061

REACTIONS (6)
  - Dermatitis contact [Unknown]
  - Erythema multiforme [Unknown]
  - Erythema [Unknown]
  - Skin oedema [Unknown]
  - Drug eruption [Unknown]
  - Skin plaque [Unknown]
